FAERS Safety Report 10102403 (Version 1)
Quarter: 2014Q2

REPORT INFORMATION
  Report Type: Spontaneous
  Country: DE (occurrence: DE)
  Receive Date: 20140424
  Receipt Date: 20140424
  Transmission Date: 20141212
  Serious: Yes (Congenital Anomaly)
  Sender: FDA-Public Use
  Company Number: GXKR2014DE001670

PATIENT
  Age: 1 Day
  Sex: Male
  Weight: 3.76 kg

DRUGS (4)
  1. LAMOTRIGINE [Suspect]
     Indication: EPILEPSY
     Dosage: 150MG/DAY
     Route: 064
  2. LAMOTRIGINE [Suspect]
     Dosage: 100 MG, TID
     Route: 064
  3. DOPPELHERZ AKTIV FOLSKABE +VITAMINI B6+B12+C+ [Concomitant]
     Indication: PROPHYLAXIS OF NEURAL TUBE DEFECT
     Dosage: 4.3 - 39.1 GESTATIONAL WEEK: 0.8 [MG/D ]
     Route: 064
     Dates: start: 20130209, end: 20131010
  4. CEFUROXIME [Concomitant]
     Indication: BACTERIAL INFECTION
     Dosage: 22. - 23. GESTATIONAL WEEK: 1000 [MG/D ]
     Route: 064

REACTIONS (1)
  - Cataract congenital [Recovered/Resolved with Sequelae]
